FAERS Safety Report 7107407-2 (Version None)
Quarter: 2010Q4

REPORT INFORMATION
  Report Type: 
  Country: None (occurrence: None)
  Receive Date: 20101111
  Receipt Date: 20101111
  Transmission Date: 20110411
  Serious: Yes (Hospitalization, Disabling)
  Sender: FDA-Public Use
  Company Number: None

PATIENT
  Age: 27 Year
  Sex: Male
  Weight: 111 kg

DRUGS (4)
  1. METHOTREXATE [Suspect]
     Indication: ACUTE LYMPHOCYTIC LEUKAEMIA
     Dosage: 6990MG ONCE IV DRIP
     Route: 042
     Dates: start: 20101108, end: 20101108
  2. PAROXETINE [Concomitant]
  3. DASATIMIB [Concomitant]
  4. DOXYCYCLINE [Concomitant]

REACTIONS (2)
  - DIALYSIS [None]
  - NEPHROPATHY TOXIC [None]
